FAERS Safety Report 11177735 (Version 2)
Quarter: 2015Q2

REPORT INFORMATION
  Report Type: Spontaneous
  Country: US (occurrence: US)
  Receive Date: 20150610
  Receipt Date: 20150619
  Transmission Date: 20150821
  Serious: No
  Sender: FDA-Public Use
  Company Number: US-009507513-1506USA003346

PATIENT
  Sex: Female

DRUGS (1)
  1. NEXPLANON [Suspect]
     Active Substance: ETONOGESTREL
     Indication: CONTRACEPTION
     Dosage: 68 MG, ONE ROD PER 3 YEARS
     Route: 059
     Dates: start: 20150428, end: 20150602

REACTIONS (3)
  - Implant site pain [Recovering/Resolving]
  - Device dislocation [Recovered/Resolved]
  - Implant site bruising [Recovering/Resolving]

NARRATIVE: CASE EVENT DATE: 2015
